FAERS Safety Report 7541913-1 (Version None)
Quarter: 2011Q2

REPORT INFORMATION
  Report Type: 
  Country: None (occurrence: None)
  Receive Date: 20110613
  Receipt Date: 20110606
  Transmission Date: 20111010
  Serious: Yes (Other)
  Sender: FDA-Public Use
  Company Number: BR-US-EMD SERONO, INC.-7063946

PATIENT
  Sex: Female

DRUGS (5)
  1. NQI POWER [Concomitant]
  2. REBIF [Suspect]
     Indication: RELAPSING-REMITTING MULTIPLE SCLEROSIS
     Dates: start: 20040531
  3. FITO-RIMUS [Concomitant]
  4. FITO-IMUNIZADOR [Concomitant]
  5. TOLTERODINE TARTRATE [Concomitant]

REACTIONS (3)
  - INJECTION SITE ERYTHEMA [None]
  - COGNITIVE DISORDER [None]
  - CEREBRAL ATROPHY [None]
